FAERS Safety Report 9239518 (Version 5)
Quarter: 2013Q3

REPORT INFORMATION
  Report Type: Report from Study
  Country: US (occurrence: US)
  Receive Date: 20130418
  Receipt Date: 20130808
  Transmission Date: 20140515
  Serious: Yes (Hospitalization)
  Sender: FDA-Public Use
  Company Number: US-VERTEX PHARMACEUTICALS INC.-2013-005021

PATIENT
  Sex: Male

DRUGS (12)
  1. VX-950 (TELAPREVIR) [Suspect]
     Indication: HEPATITIS C
     Dosage: UNK
     Route: 048
     Dates: start: 20130316, end: 20130419
  2. RIBAVIRIN [Suspect]
     Indication: HEPATITIS C
     Dosage: UNK UNK, BID
     Dates: start: 20130316
  3. RIBAVIRIN [Suspect]
     Dosage: 400 MG IN AM, 200 MG IN PM
     Dates: end: 20130419
  4. PEGASYS [Suspect]
     Indication: HEPATITIS C
     Dosage: UNK
     Dates: start: 20130316, end: 20130419
  5. DOXAZOSIN MESILATE [Concomitant]
     Dosage: 4 MG, QD
  6. OMEPRAZOLE [Concomitant]
     Dosage: 20 MG, QD
  7. LOSARTAN POTASSIUM AND HYDROCHLOROTHIAZIDE [Concomitant]
     Dosage: 1 DF, QD
  8. VITAMIN B1 [Concomitant]
     Dosage: 100 MG, QD
  9. ASPIRIN [Concomitant]
     Dosage: 81 MG, QD
  10. VITAMIN C [Concomitant]
     Dosage: 500 MG, UNK
  11. VITAMIN D [Concomitant]
     Dosage: UNK UT, UNK
  12. MULTIVITAMINS [Concomitant]

REACTIONS (15)
  - Anaemia [Not Recovered/Not Resolved]
  - Depression [Not Recovered/Not Resolved]
  - Dizziness [Not Recovered/Not Resolved]
  - Headache [Not Recovered/Not Resolved]
  - Insomnia [Not Recovered/Not Resolved]
  - Palpitations [Unknown]
  - Confusional state [Not Recovered/Not Resolved]
  - Nightmare [Unknown]
  - Chills [Recovered/Resolved]
  - Mood altered [Not Recovered/Not Resolved]
  - Decreased appetite [Recovered/Resolved]
  - Dry mouth [Not Recovered/Not Resolved]
  - Fatigue [Not Recovered/Not Resolved]
  - Asthenia [Not Recovered/Not Resolved]
  - Proctalgia [Unknown]
